FAERS Safety Report 4509186-1 (Version None)
Quarter: 2004Q4

REPORT INFORMATION
  Report Type: 
  Country: None (occurrence: None)
  Receive Date: 20041025
  Receipt Date: 20040224
  Transmission Date: 20050328
  Serious: Yes (Other)
  Sender: FDA-Public Use
  Company Number: NSADSS2002016605

PATIENT
  Age: 30 Year
  Sex: Female
  Weight: 55 kg

DRUGS (6)
  1. REMICADE [Suspect]
     Indication: RHEUMATOID ARTHRITIS
     Dosage: SEE IMAGE
     Route: 041
     Dates: start: 20020405, end: 20020405
  2. REMICADE [Suspect]
     Indication: RHEUMATOID ARTHRITIS
     Dosage: SEE IMAGE
     Route: 041
     Dates: start: 20020514, end: 20020514
  3. METHOTREXATE [Concomitant]
  4. FOLIC ACID [Concomitant]
  5. NEURONTIN [Concomitant]
  6. PREDNISONE [Concomitant]

REACTIONS (7)
  - CHILLS [None]
  - FLUSHING [None]
  - HYPERTENSION [None]
  - HYPOXIA [None]
  - PAIN [None]
  - PYREXIA [None]
  - TACHYCARDIA [None]
